FAERS Safety Report 22270264 (Version 2)
Quarter: 2023Q2

REPORT INFORMATION
  Report Type: Report from Study
  Country: PS (occurrence: None)
  Receive Date: 20230501
  Receipt Date: 20230514
  Transmission Date: 20230721
  Serious: Yes (Other)
  Sender: FDA-Public Use
  Company Number: PS-Merck Healthcare KGaA-9399205

PATIENT
  Age: 26 Year
  Sex: Female
  Weight: 68 kg

DRUGS (5)
  1. MAVENCLAD [Suspect]
     Active Substance: CLADRIBINE
     Indication: Multiple sclerosis
     Dosage: YEAR ONE MONTH ONE THERAPY, WEIGHT OF PATIENT WAS 57 KG
     Route: 048
     Dates: start: 20201210, end: 20201214
  2. MAVENCLAD [Suspect]
     Active Substance: CLADRIBINE
     Dosage: YEAR ONE MONTH TWO THERAPY, WEIGHT OF PATIENT WAS 57 KG
     Route: 048
     Dates: start: 20210110, end: 20211001
  3. CORTISONE [Suspect]
     Active Substance: CORTISONE
     Indication: Product used for unknown indication
     Dosage: TOOK 4 INJECTIONS UNTIL 13 APR 2023
     Dates: start: 20230410
  4. CORTISONE [Suspect]
     Active Substance: CORTISONE
     Dosage: (PILLS) FOR TWO WEEKS
  5. DOSTINEX [Concomitant]
     Active Substance: CABERGOLINE
     Indication: Product used for unknown indication
     Dosage: ON 24 APR 2023 WITH A TOTAL OF 2 PILLS
     Dates: start: 20230417

REACTIONS (5)
  - Cachexia [Unknown]
  - Hypertension [Unknown]
  - Vision blurred [Not Recovered/Not Resolved]
  - Depressed mood [Not Recovered/Not Resolved]
  - Asthenia [Not Recovered/Not Resolved]
